FAERS Safety Report 7061106-4 (Version None)
Quarter: 2010Q4

REPORT INFORMATION
  Report Type: 
  Country: None (occurrence: None)
  Receive Date: 20101026
  Receipt Date: 20101019
  Transmission Date: 20110411
  Serious: Yes (Other)
  Sender: FDA-Public Use
  Company Number: JP-PFIZER INC-2010132176

PATIENT
  Age: 77 Year
  Sex: Female

DRUGS (4)
  1. AMLODIPINE BESYLATE [Suspect]
     Dosage: 2.5 MG, 1X/DAY
     Route: 048
     Dates: start: 20080116, end: 20091228
  2. FLOMOX [Suspect]
     Indication: PERIODONTAL DISEASE
     Dosage: 100 MG, 3X/DAY
     Route: 048
     Dates: start: 20091202, end: 20091205
  3. OMEPRAZOLE [Concomitant]
     Dosage: 20 MG, 1X/DAY
     Route: 048
     Dates: end: 20091228
  4. AMEZINIUM METILSULFATE [Concomitant]
     Dosage: 10 MG, 2X/DAY
     Route: 048
     Dates: end: 20091228

REACTIONS (1)
  - INTERSTITIAL LUNG DISEASE [None]
